FAERS Safety Report 15606726 (Version 1)
Quarter: 2018Q4

REPORT INFORMATION
  Report Type: Spontaneous
  Country: GB (occurrence: GB)
  Receive Date: 20181112
  Receipt Date: 20181112
  Transmission Date: 20190205
  Serious: Yes (Life-Threatening, Hospitalization)
  Sender: FDA-Public Use
  Company Number: GB-ACCORD-091632

PATIENT
  Age: 83 Year
  Sex: Male
  Weight: 79.37 kg

DRUGS (11)
  1. METHOTREXATE. [Suspect]
     Active Substance: METHOTREXATE
     Indication: RHEUMATOID ARTHRITIS
     Route: 048
     Dates: start: 20161101, end: 20170612
  2. SIMVASTATIN. [Concomitant]
     Active Substance: SIMVASTATIN
  3. BUMETANIDE. [Concomitant]
     Active Substance: BUMETANIDE
  4. CARBOCISTEINE/CARBOCISTEINE LYSINE/CARBOCISTEINE SODIUM [Concomitant]
  5. LEVOTHYROXINE. [Concomitant]
     Active Substance: LEVOTHYROXINE
  6. LYRICA [Concomitant]
     Active Substance: PREGABALIN
  7. NAPROXEN. [Concomitant]
     Active Substance: NAPROXEN
  8. LANSOPRAZOLE. [Concomitant]
     Active Substance: LANSOPRAZOLE
  9. SULFASALAZINE. [Concomitant]
     Active Substance: SULFASALAZINE
  10. OXYNORM [Concomitant]
     Active Substance: OXYCODONE HYDROCHLORIDE
  11. CEFALEXIN [Concomitant]
     Active Substance: CEPHALEXIN

REACTIONS (7)
  - Vision blurred [Recovered/Resolved with Sequelae]
  - Skin exfoliation [Recovered/Resolved with Sequelae]
  - Sepsis [Unknown]
  - Diarrhoea [Recovered/Resolved with Sequelae]
  - Faeces discoloured [Recovered/Resolved with Sequelae]
  - Lower respiratory tract infection [Recovered/Resolved with Sequelae]
  - Loss of consciousness [Recovered/Resolved]

NARRATIVE: CASE EVENT DATE: 20170526
